FAERS Safety Report 14526571 (Version 10)
Quarter: 2018Q2

REPORT INFORMATION
  Report Type: Spontaneous
  Country: FR (occurrence: FR)
  Receive Date: 20180213
  Receipt Date: 20180530
  Transmission Date: 20180711
  Serious: Yes (Hospitalization, Other)
  Sender: FDA-Public Use
  Company Number: FR-PFIZER INC-2018060922

PATIENT
  Age: 92 Year
  Sex: Female

DRUGS (4)
  1. INSULIN [Concomitant]
     Active Substance: INSULIN NOS
     Dosage: UNK
  2. ZOLPIDEM [Suspect]
     Active Substance: ZOLPIDEM\ZOLPIDEM TARTRATE
     Dosage: 10 MG, 1X/DAY (AT BEDTIME)
  3. PARACETAMOL [Suspect]
     Active Substance: ACETAMINOPHEN
     Indication: JOINT INJURY
     Dosage: UNK
  4. ALPRAZOLAM. [Suspect]
     Active Substance: ALPRAZOLAM
     Dosage: 0.25 MG, 3X/DAY

REACTIONS (5)
  - Intentional product misuse [Recovering/Resolving]
  - General physical health deterioration [Unknown]
  - Performance status decreased [Unknown]
  - Drug withdrawal syndrome [Recovering/Resolving]
  - Generalised tonic-clonic seizure [Recovered/Resolved]
